FAERS Safety Report 25445854 (Version 1)
Quarter: 2025Q2

REPORT INFORMATION
  Report Type: Spontaneous
  Country: FR (occurrence: FR)
  Receive Date: 20250617
  Receipt Date: 20250617
  Transmission Date: 20250717
  Serious: Yes (Other)
  Sender: PFIZER
  Company Number: None

PATIENT
  Age: 84 Year
  Sex: Male

DRUGS (9)
  1. XALKORI [Suspect]
     Active Substance: CRIZOTINIB
     Indication: Lung cancer metastatic
     Route: 048
     Dates: end: 202304
  2. TIMOLOL [Concomitant]
     Active Substance: TIMOLOL
  3. INNOHEP [Concomitant]
     Active Substance: TINZAPARIN SODIUM
  4. DAFALGAN [Concomitant]
     Active Substance: ACETAMINOPHEN
  5. MOVICOL [Concomitant]
     Active Substance: POLYETHYLENE GLYCOL 3350\POTASSIUM CHLORIDE\SODIUM BICARBONATE\SODIUM CHLORIDE
  6. RACECADOTRIL [Concomitant]
     Active Substance: RACECADOTRIL
  7. PANTOPRAZOLE [Concomitant]
     Active Substance: PANTOPRAZOLE
  8. METOCLOPRAMIDE [Concomitant]
     Active Substance: METOCLOPRAMIDE
  9. OXYCODONE HYDROCHLORIDE [Concomitant]
     Active Substance: OXYCODONE HYDROCHLORIDE

REACTIONS (3)
  - Bradycardia [Recovered/Resolved]
  - Orthostatic hypotension [Unknown]
  - Hypotension [Unknown]

NARRATIVE: CASE EVENT DATE: 20230309
